FAERS Safety Report 5364748-7 (Version None)
Quarter: 2007Q2

REPORT INFORMATION
  Report Type: 
  Country: None (occurrence: None)
  Receive Date: 20070611
  Receipt Date: 20070124
  Transmission Date: 20071010
  Serious: Yes (Other)
  Sender: FDA-Public Use
  Company Number: 2007007251

PATIENT
  Age: 59 Year
  Sex: Female
  Weight: 54.4316 kg

DRUGS (2)
  1. ALDACTONE [Suspect]
     Indication: FLUID RETENTION
     Dosage: 25 MG (25 MG, QD: EVERY DAY)
  2. MULTI-VITAMINS [Concomitant]

REACTIONS (4)
  - ANAEMIA [None]
  - BLOOD FOLATE DECREASED [None]
  - GASTRIC ULCER [None]
  - HAEMATOCHEZIA [None]
